FAERS Safety Report 8042631-6 (Version None)
Quarter: 2012Q1

REPORT INFORMATION
  Report Type: 
  Country: None (occurrence: None)
  Receive Date: 20120112
  Receipt Date: 20111228
  Transmission Date: 20120608
  Serious: Yes (Death)
  Sender: FDA-Public Use
  Company Number: US-UCBSA-048985

PATIENT
  Age: 62 Year
  Sex: Female

DRUGS (18)
  1. METOLAZONE [Suspect]
  2. CITALOPRAM [Suspect]
  3. OMEPRAZOLE [Suspect]
     Route: 048
  4. INSULIN [Suspect]
  5. SALICYLATE [Suspect]
  6. ANGIOTENSIN-CONVERTING ENZYME INHIBITOR [Suspect]
  7. FLUTICASONE/SALMATEROL [Suspect]
  8. METOPROLOL [Suspect]
  9. LOVASTATIN [Suspect]
  10. METFORMIN HCL [Suspect]
  11. DOCUSATE [Suspect]
  12. AMLODIPINE [Suspect]
  13. CLONIDINE [Suspect]
  14. GABAPENTIN [Suspect]
  15. ALBUTEROL [Suspect]
  16. FAMOTIDINE [Suspect]
     Route: 048
  17. IRON [Suspect]
  18. FUROSEMIDE [Suspect]

REACTIONS (1)
  - TOXICITY TO VARIOUS AGENTS [None]
